FAERS Safety Report 20709583 (Version 2)
Quarter: 2022Q3

REPORT INFORMATION
  Report Type: Spontaneous
  Country: KR (occurrence: KR)
  Receive Date: 20220414
  Receipt Date: 20220921
  Transmission Date: 20221027
  Serious: Yes (Hospitalization, Other)
  Sender: FDA-Public Use
  Company Number: KR-CELLTRION INC.-2022KR002796

PATIENT

DRUGS (4)
  1. INFLIXIMAB [Suspect]
     Active Substance: INFLIXIMAB
     Indication: Crohn^s disease
     Dosage: 120MG, SC
     Route: 058
     Dates: start: 20220223
  2. ARONAMIN GOLD [Concomitant]
     Active Substance: ALPHA-TOCOPHEROL ACETATE\ASCORBIC ACID\FURSULTIAMINE\HYDROXOCOBALAMIN ACETATE\RIBOFLAVIN TETRABUTYRA
     Dosage: 1 TAB, QD
     Dates: start: 202108
  3. NUCYNTA [Concomitant]
     Active Substance: TAPENTADOL HYDROCHLORIDE
     Dosage: 50 MILLIGRAM, BID
     Dates: start: 20220906
  4. URSODIOL [Concomitant]
     Active Substance: URSODIOL
     Dosage: 6 MILLIGRAM, BID
     Dates: start: 20220906

REACTIONS (5)
  - SARS-CoV-2 test positive [Not Recovered/Not Resolved]
  - Renal surgery [Recovered/Resolved]
  - Injection site pain [Recovered/Resolved]
  - Alopecia [Not Recovered/Not Resolved]
  - Condition aggravated [Not Recovered/Not Resolved]

NARRATIVE: CASE EVENT DATE: 20220301
